FAERS Safety Report 16132555 (Version 1)
Quarter: 2019Q1

REPORT INFORMATION
  Report Type: Spontaneous
  Country: US (occurrence: US)
  Receive Date: 20190226
  Receipt Date: 20190226
  Transmission Date: 20190418
  Serious: Yes (Death)
  Sender: FDA-Public Use
  Company Number: None

PATIENT
  Age: 70 Year
  Sex: Male

DRUGS (1)
  1. TOBRAMYCIN 300MG/5L [Suspect]
     Active Substance: TOBRAMYCIN
     Indication: BRONCHITIS
     Dosage: ?          OTHER DOSE:300MG/5ML;?
     Route: 048
     Dates: start: 20160113, end: 20190208

REACTIONS (1)
  - Death [None]

NARRATIVE: CASE EVENT DATE: 20190208
